FAERS Safety Report 11576132 (Version 1)
Quarter: 2015Q3

REPORT INFORMATION
  Report Type: Spontaneous
  Country: GB (occurrence: GB)
  Receive Date: 20150930
  Receipt Date: 20150930
  Transmission Date: 20151125
  Serious: Yes (Other)
  Sender: FDA-Public Use
  Company Number: GB-ROCHE-1631658

PATIENT
  Age: 56 Year
  Sex: Female
  Weight: 70 kg

DRUGS (1)
  1. KADCYLA [Suspect]
     Active Substance: ADO-TRASTUZUMAB EMTANSINE
     Indication: BREAST CANCER
     Route: 042

REACTIONS (5)
  - Exposure via direct contact [Unknown]
  - Erythema [Unknown]
  - Catheter site extravasation [Not Recovered/Not Resolved]
  - Musculoskeletal chest pain [Unknown]
  - Local swelling [Unknown]

NARRATIVE: CASE EVENT DATE: 20150828
